FAERS Safety Report 8585396-1 (Version None)
Quarter: 2012Q3

REPORT INFORMATION
  Report Type: 
  Country: None (occurrence: None)
  Receive Date: 20120810
  Receipt Date: 20120803
  Transmission Date: 20120928
  Serious: Yes (Hospitalization)
  Sender: FDA-Public Use
  Company Number: FR-B.I. PHARMACEUTICALS,INC./RIDGEFIELD-2012-FF-01034FF

PATIENT
  Sex: Male

DRUGS (14)
  1. NICOTINE [Suspect]
     Indication: EX-TOBACCO USER
     Dosage: 14 MG
     Route: 062
     Dates: start: 20120626, end: 20120627
  2. BIPERIDYS [Concomitant]
     Dosage: 2 TO 3 DAILY
     Route: 048
  3. ROCEPHIN [Concomitant]
     Indication: LUNG DISORDER
     Dosage: 1 G
     Route: 042
     Dates: start: 20120626, end: 20120702
  4. LASIX [Suspect]
     Route: 042
     Dates: start: 20120626, end: 20120627
  5. INNOHEP [Concomitant]
     Route: 058
     Dates: start: 20120626, end: 20120627
  6. AUGMENTIN '500' [Concomitant]
     Indication: LUNG DISORDER
     Dosage: 3 G
     Route: 048
     Dates: start: 20120626, end: 20120626
  7. ATROVENT [Suspect]
     Indication: LUNG DISORDER
     Route: 055
     Dates: start: 20120626, end: 20120703
  8. BRICANYL [Suspect]
     Indication: LUNG DISORDER
     Route: 055
     Dates: start: 20120626, end: 20120703
  9. POTASSIUM CHLORIDE [Concomitant]
     Route: 048
     Dates: start: 20120627, end: 20120627
  10. TAMSULOSIN HYDROCHLORIDE [Concomitant]
     Dosage: 0.4 MG
     Route: 048
  11. CREON [Concomitant]
     Indication: PANCREATIC DISORDER
     Dosage: 25000 U
     Route: 048
  12. ULTRA LEVURE [Concomitant]
     Route: 048
     Dates: end: 20120704
  13. TRIMEBUTINE [Concomitant]
     Dosage: 600 MG
     Route: 048
     Dates: end: 20120704
  14. OXAZEPAM [Concomitant]
     Dosage: 75 MG
     Route: 048
     Dates: start: 20120626

REACTIONS (2)
  - TACHYCARDIA [None]
  - ARRHYTHMIA [None]
